FAERS Safety Report 5961458-X (Version None)
Quarter: 2008Q4

REPORT INFORMATION
  Report Type: 
  Country: None (occurrence: None)
  Receive Date: 20081121
  Receipt Date: 20081110
  Transmission Date: 20090506
  Serious: Yes (Death, Other)
  Sender: FDA-Public Use
  Company Number: US-PURDUE-USA_2008_0033073

PATIENT
  Age: 17 Year
  Sex: Male

DRUGS (1)
  1. OXYCONTIN [Suspect]
     Indication: LIMB INJURY
     Dates: start: 20070401

REACTIONS (5)
  - ACCIDENTAL OVERDOSE [None]
  - ALCOHOL USE [None]
  - ASPIRATION [None]
  - DRUG ABUSE [None]
  - DRUG DEPENDENCE [None]
